FAERS Safety Report 6590037-9 (Version None)
Quarter: 2010Q1

REPORT INFORMATION
  Report Type: 
  Country: None (occurrence: None)
  Receive Date: 20100219
  Receipt Date: 20100210
  Transmission Date: 20100710
  Serious: Yes (Other)
  Sender: FDA-Public Use
  Company Number: PHHY2009CA15595

PATIENT
  Sex: Female

DRUGS (10)
  1. EXJADE [Suspect]
     Indication: CONGENITAL APLASTIC ANAEMIA
     Dosage: 1250 MG, UNK
     Route: 048
     Dates: start: 20090309
  2. EXJADE [Suspect]
     Indication: IRON OVERLOAD
  3. CALCIUM [Concomitant]
     Dosage: 2 DF, QD
  4. ACTONEL [Concomitant]
     Dosage: 3.5 MG, 1 DF, UNK
     Route: 048
  5. HALIBUT [Concomitant]
     Dosage: 2 TABLETS DAILY
     Route: 048
  6. WARFARIN SODIUM [Concomitant]
     Dosage: 3 MG, 1 TABLET ONE DAY
     Route: 048
  7. WARFARIN SODIUM [Concomitant]
     Dosage: 2 MG, 1 TABLET NEXT DAY
     Route: 048
  8. PROVERA [Concomitant]
     Dosage: 1 DF, UNK
     Route: 048
  9. PARIET [Concomitant]
     Dosage: 20 MG, 1 DFDAILY, UNK
     Route: 048
  10. COUMADIN [Concomitant]

REACTIONS (4)
  - BACK PAIN [None]
  - HEPATIC ENZYME INCREASED [None]
  - NEPHROLITHIASIS [None]
  - PAIN [None]
